FAERS Safety Report 6723952-3 (Version None)
Quarter: 2010Q2

REPORT INFORMATION
  Report Type: 
  Country: None (occurrence: None)
  Receive Date: 20100513
  Receipt Date: 20100505
  Transmission Date: 20101027
  Serious: Yes (Hospitalization)
  Sender: FDA-Public Use
  Company Number: PHHO2010FR06869

PATIENT
  Sex: Male
  Weight: 94 kg

DRUGS (2)
  1. CERTICAN [Suspect]
     Indication: RENAL TRANSPLANT
     Dosage: UNK
     Route: 048
     Dates: start: 20091215
  2. MYFORTIC [Concomitant]
     Indication: RENAL TRANSPLANT

REACTIONS (1)
  - HERNIAL EVENTRATION [None]
